FAERS Safety Report 25097659 (Version 1)
Quarter: 2025Q1

REPORT INFORMATION
  Report Type: Spontaneous
  Country: US (occurrence: US)
  Receive Date: 20250320
  Receipt Date: 20250320
  Transmission Date: 20250408
  Serious: Yes (Hospitalization, Other)
  Sender: ANI
  Company Number: US-ANIPHARMA-016062

PATIENT
  Age: 81 Year
  Sex: Male
  Weight: 72.6 kg

DRUGS (11)
  1. METOCLOPRAMIDE [Suspect]
     Active Substance: METOCLOPRAMIDE
     Indication: Dyspepsia
     Route: 048
     Dates: start: 20250308
  2. JARDIANCE [Concomitant]
     Active Substance: EMPAGLIFLOZIN
     Indication: Product used for unknown indication
  3. NIFEDIPINE [Concomitant]
     Active Substance: NIFEDIPINE
     Indication: Product used for unknown indication
  4. HYDRALAZINE [Concomitant]
     Active Substance: HYDRALAZINE HYDROCHLORIDE
     Indication: Product used for unknown indication
  5. LOSARTAN [Concomitant]
     Active Substance: LOSARTAN
     Indication: Product used for unknown indication
  6. DOXAZOSIN [Concomitant]
     Active Substance: DOXAZOSIN MESYLATE
     Indication: Product used for unknown indication
  7. DOXYCYCLINE [Concomitant]
     Active Substance: DOXYCYCLINE
     Indication: Product used for unknown indication
  8. SIMVASTATIN [Concomitant]
     Active Substance: SIMVASTATIN
     Indication: Product used for unknown indication
  9. ZETIA [Concomitant]
     Active Substance: EZETIMIBE
     Indication: Product used for unknown indication
  10. ALLOPURINOL [Concomitant]
     Active Substance: ALLOPURINOL
     Indication: Product used for unknown indication
  11. METOCLOPRAMIDE [Suspect]
     Active Substance: METOCLOPRAMIDE
     Indication: Dyspepsia
     Route: 048
     Dates: start: 20250311

REACTIONS (8)
  - Abnormal dreams [Unknown]
  - Hallucination [Unknown]
  - Middle insomnia [Unknown]
  - Agitation [Unknown]
  - Fear [Unknown]
  - Feeling abnormal [Unknown]
  - Nightmare [Unknown]
  - Product dose omission issue [Unknown]

NARRATIVE: CASE EVENT DATE: 20250310
